FAERS Safety Report 23601868 (Version 1)
Quarter: 2024Q1

REPORT INFORMATION
  Report Type: Spontaneous
  Country: US (occurrence: US)
  Receive Date: 20240306
  Receipt Date: 20240306
  Transmission Date: 20240410
  Serious: No
  Sender: FDA-Public Use
  Company Number: US-002147023-NVSC2024US042652

PATIENT
  Age: 60 Year
  Sex: Male

DRUGS (1)
  1. LEQVIO [Suspect]
     Active Substance: INCLISIRAN SODIUM
     Indication: Low density lipoprotein decreased
     Dosage: 284 MG, OTHER (DAY 1, DAY 90, DAY 270 EVERY 180 DAYS)
     Route: 058

REACTIONS (3)
  - Myalgia [Unknown]
  - Muscle twitching [Unknown]
  - Muscular weakness [Unknown]
